FAERS Safety Report 5017688-7 (Version None)
Quarter: 2006Q2

REPORT INFORMATION
  Report Type: 
  Country: None (occurrence: None)
  Receive Date: 20060525
  Receipt Date: 20060511
  Transmission Date: 20061013
  Serious: Yes (Death)
  Sender: FDA-Public Use
  Company Number: 2006S1004253

PATIENT
  Age: 90 Year
  Sex: Female

DRUGS (5)
  1. CLOZAPINE [Suspect]
     Dosage: 25 MG;HS;PO
     Route: 048
     Dates: end: 20060101
  2. LEVOTHYROXINE SODIUM [Concomitant]
  3. VALPROATE SODIUM [Concomitant]
  4. MIRTAZAPINE [Concomitant]
  5. VENLAFAXINE HCL [Concomitant]

REACTIONS (1)
  - CARDIAC DISORDER [None]
